FAERS Safety Report 5087096-1 (Version None)
Quarter: 2006Q3

REPORT INFORMATION
  Report Type: 
  Country: None (occurrence: None)
  Receive Date: 20060821
  Receipt Date: 20060726
  Transmission Date: 20061208
  Serious: Yes (Hospitalization, Other)
  Sender: FDA-Public Use
  Company Number: POMP-10787

PATIENT
  Age: 9 Month
  Sex: Female
  Weight: 7 kg

DRUGS (6)
  1. MYOZYME [Suspect]
     Indication: GLYCOGEN STORAGE DISEASE TYPE II
     Dosage: 20 MG/KG Q2WKS IV
     Route: 042
     Dates: start: 20060722
  2. FUROSEMIDE [Concomitant]
  3. CAPTOPRIL [Concomitant]
  4. DIGOXIN [Concomitant]
  5. L-CARNITINE [Concomitant]
  6. COENZYME Q10 [Concomitant]

REACTIONS (25)
  - ALANINE AMINOTRANSFERASE INCREASED [None]
  - ALDOLASE INCREASED [None]
  - ASPARTATE AMINOTRANSFERASE INCREASED [None]
  - BLOOD CREATINE PHOSPHOKINASE INCREASED [None]
  - BLOOD CREATINE PHOSPHOKINASE MB INCREASED [None]
  - BLOOD GLUCOSE DECREASED [None]
  - BLOOD LACTATE DEHYDROGENASE INCREASED [None]
  - BLOOD UREA INCREASED [None]
  - CARDIAC FAILURE [None]
  - CARDIOMYOPATHY [None]
  - CATHETER SITE INFECTION [None]
  - DECREASED APPETITE [None]
  - ENTEROCOCCAL INFECTION [None]
  - HAEMATOCRIT DECREASED [None]
  - HAEMOGLOBIN DECREASED [None]
  - HEPATOMEGALY [None]
  - HYPERSENSITIVITY [None]
  - HYPERTROPHY [None]
  - PERICARDIAL EFFUSION [None]
  - PERICARDITIS INFECTIVE [None]
  - PLATELET COUNT INCREASED [None]
  - RED BLOOD CELL COUNT DECREASED [None]
  - TACHYPNOEA [None]
  - THERAPY NON-RESPONDER [None]
  - TROPONIN INCREASED [None]
